FAERS Safety Report 20701766 (Version 1)
Quarter: 2022Q2

REPORT INFORMATION
  Report Type: Spontaneous
  Country: US (occurrence: US)
  Receive Date: 20220412
  Receipt Date: 20220412
  Transmission Date: 20220721
  Serious: No
  Sender: FDA-Public Use
  Company Number: US-MYLANLABS-2022M1024280

PATIENT
  Sex: Male

DRUGS (1)
  1. FENTANYL TRANSDERMAL SYSTEM [Suspect]
     Active Substance: FENTANYL
     Indication: Anaplastic thyroid cancer
     Dosage: 25 MICROGRAM, TID
     Route: 062

REACTIONS (3)
  - Product use complaint [Unknown]
  - Off label use [Unknown]
  - Wrong technique in product usage process [Unknown]
